FAERS Safety Report 22176630 (Version 1)
Quarter: 2023Q2

REPORT INFORMATION
  Report Type: Spontaneous
  Country: FR (occurrence: FR)
  Receive Date: 20230405
  Receipt Date: 20230405
  Transmission Date: 20230721
  Serious: Yes (Hospitalization)
  Sender: FDA-Public Use
  Company Number: None

PATIENT
  Age: 60 Year
  Sex: Male

DRUGS (3)
  1. ADBRY [Suspect]
     Active Substance: TRALOKINUMAB-LDRM
     Indication: Eczema
     Dosage: POSOLOGIE ATTAQUE 4X150 MG
     Dates: start: 20230126, end: 20230126
  2. DUPIXENT [Suspect]
     Active Substance: DUPILUMAB
     Indication: Eczema
     Dates: start: 20221104, end: 20230120
  3. DEVICE [Suspect]
     Active Substance: DEVICE
     Indication: Eczema

REACTIONS (6)
  - Epistaxis [Recovering/Resolving]
  - Epistaxis [Recovering/Resolving]
  - Thrombocytopenia [Recovering/Resolving]
  - Thrombocytopenia [Recovering/Resolving]
  - Spontaneous haematoma [Recovering/Resolving]
  - Spontaneous haematoma [Recovering/Resolving]

NARRATIVE: CASE EVENT DATE: 20230207
